FAERS Safety Report 10725149 (Version 1)
Quarter: 2015Q1

REPORT INFORMATION
  Report Type: Spontaneous
  Country: US (occurrence: US)
  Receive Date: 20150120
  Receipt Date: 20150120
  Transmission Date: 20150721
  Serious: No
  Sender: FDA-Public Use
  Company Number: US-ASTRAZENECA-2015SE05136

PATIENT
  Age: 52 Year
  Sex: Female
  Weight: 105 kg

DRUGS (3)
  1. NEXIUM 24HR [Suspect]
     Active Substance: ESOMEPRAZOLE MAGNESIUM
     Indication: DYSPEPSIA
     Route: 048
     Dates: start: 20141011, end: 201410
  2. LANSOPRAZOLE. [Concomitant]
     Active Substance: LANSOPRAZOLE
  3. IBUPROFEN. [Concomitant]
     Active Substance: IBUPROFEN
     Indication: PAIN

REACTIONS (4)
  - Drug ineffective [Recovered/Resolved]
  - Malaise [Recovered/Resolved]
  - Dyspepsia [Recovered/Resolved]
  - Insomnia [Recovered/Resolved]
